FAERS Safety Report 23515915 (Version 1)
Quarter: 2024Q1

REPORT INFORMATION
  Report Type: Spontaneous
  Country: IL (occurrence: IL)
  Receive Date: 20240213
  Receipt Date: 20240213
  Transmission Date: 20240410
  Serious: Yes (Hospitalization)
  Sender: FDA-Public Use
  Company Number: IL-TEVA-VS-3155887

PATIENT
  Age: 55 Year
  Sex: Female

DRUGS (1)
  1. CARBOPLATIN [Suspect]
     Active Substance: CARBOPLATIN
     Route: 065

REACTIONS (3)
  - Hypersensitivity [Unknown]
  - Dyspnoea [Unknown]
  - Oxygen saturation decreased [Unknown]
